FAERS Safety Report 7010962-4 (Version None)
Quarter: 2010Q3

REPORT INFORMATION
  Report Type: 
  Country: None (occurrence: None)
  Receive Date: 20100923
  Receipt Date: 20060822
  Transmission Date: 20110219
  Serious: No
  Sender: FDA-Public Use
  Company Number: HQWYE886123AUG06

PATIENT
  Sex: Male

DRUGS (3)
  1. EFFEXOR XR [Suspect]
     Indication: DEPRESSION
     Route: 048
  2. METOPROLOL SUCCINATE [Concomitant]
  3. LIPITOR [Concomitant]

REACTIONS (7)
  - ABDOMINAL PAIN UPPER [None]
  - DRUG INEFFECTIVE [None]
  - DRUG WITHDRAWAL SYNDROME [None]
  - FEELING ABNORMAL [None]
  - HEADACHE [None]
  - HYPERHIDROSIS [None]
  - NAUSEA [None]
